FAERS Safety Report 7875431-8 (Version None)
Quarter: 2011Q4

REPORT INFORMATION
  Report Type: 
  Country: None (occurrence: None)
  Receive Date: 20111031
  Receipt Date: 20111019
  Transmission Date: 20120403
  Serious: Yes (Other)
  Sender: FDA-Public Use
  Company Number: PHHY2011BR92746

PATIENT
  Sex: Female

DRUGS (2)
  1. DIAMICRON [Suspect]
  2. EXFORGE [Suspect]
     Dosage: UNK UKN, UNK

REACTIONS (4)
  - PNEUMONIA [None]
  - HYPERTENSION [None]
  - DIABETES MELLITUS [None]
  - CONVULSION [None]
